FAERS Safety Report 8329606-4 (Version None)
Quarter: 2012Q2

REPORT INFORMATION
  Report Type: 
  Country: None (occurrence: None)
  Receive Date: 20120502
  Receipt Date: 20120423
  Transmission Date: 20120825
  Serious: Yes (Death)
  Sender: FDA-Public Use
  Company Number: DE-ROCHE-1062042

PATIENT
  Sex: Male

DRUGS (5)
  1. AVASTIN [Suspect]
     Indication: COLORECTAL CANCER
  2. XELODA [Suspect]
     Indication: COLORECTAL CANCER
  3. OXALIPLATIN [Suspect]
     Indication: COLORECTAL CANCER
  4. LEUCOVORIN CALCIUM [Suspect]
     Indication: COLORECTAL CANCER
  5. FLUOROURACIL [Suspect]
     Indication: COLORECTAL CANCER

REACTIONS (1)
  - NEOPLASM PROGRESSION [None]
